FAERS Safety Report 4768850-X (Version None)
Quarter: 2005Q3

REPORT INFORMATION
  Report Type: 
  Country: None (occurrence: None)
  Receive Date: 20050914
  Receipt Date: 20050526
  Transmission Date: 20060218
  Serious: Yes (Hospitalization, Disabling)
  Sender: FDA-Public Use
  Company Number: US-MERCK-0505USA03261

PATIENT
  Age: 57 Year
  Sex: Male
  Weight: 97 kg

DRUGS (11)
  1. VIOXX [Suspect]
     Indication: SHOULDER PAIN
     Route: 048
     Dates: start: 20010101, end: 20040930
  2. ENDOCET [Concomitant]
     Route: 065
     Dates: start: 20010501
  3. ENDOCET [Concomitant]
     Route: 065
     Dates: start: 20040501
  4. ENDOCET [Concomitant]
     Route: 065
     Dates: start: 20040801
  5. NAPROXEN [Concomitant]
     Indication: BACK PAIN
     Route: 065
     Dates: start: 20030801, end: 20030901
  6. NAPROXEN [Concomitant]
     Route: 065
     Dates: start: 20031201
  7. TYLENOL W/ CODEINE [Concomitant]
     Route: 065
     Dates: start: 20010301, end: 20010401
  8. TYLENOL W/ CODEINE [Concomitant]
     Route: 065
     Dates: start: 20010701
  9. TYLENOL W/ CODEINE [Concomitant]
     Route: 065
     Dates: start: 20021001, end: 20021101
  10. ADVIL [Concomitant]
     Indication: SHOULDER PAIN
     Route: 065
     Dates: start: 19950101
  11. ADVIL [Concomitant]
     Indication: TOOTH ABSCESS
     Route: 065
     Dates: start: 19950101

REACTIONS (5)
  - BLOOD CHOLESTEROL INCREASED [None]
  - CARDIAC DISORDER [None]
  - CHEST PAIN [None]
  - HYPERTENSION [None]
  - MYOCARDIAL INFARCTION [None]
